FAERS Safety Report 9646061 (Version 1)
Quarter: 2013Q4

REPORT INFORMATION
  Report Type: Spontaneous
  Country: US (occurrence: None)
  Receive Date: 20131023
  Receipt Date: 20131023
  Transmission Date: 20140711
  Serious: Yes (Hospitalization)
  Sender: FDA-Public Use
  Company Number: 2013CT000084

PATIENT
  Age: 59 Year
  Sex: Female
  Weight: 96.16 kg

DRUGS (1)
  1. KORLYM [Suspect]
     Indication: PITUITARY-DEPENDENT CUSHING^S SYNDROME
     Route: 048
     Dates: start: 20130910

REACTIONS (5)
  - Haematemesis [None]
  - Tremor [None]
  - Asthenia [None]
  - Blood potassium decreased [None]
  - Blood pressure increased [None]
